FAERS Safety Report 9112573 (Version 1)
Quarter: 2013Q1

REPORT INFORMATION
  Report Type: Spontaneous
  Country: CA (occurrence: CA)
  Receive Date: 20130211
  Receipt Date: 20130211
  Transmission Date: 20140127
  Serious: Yes (Other)
  Sender: FDA-Public Use
  Company Number: CA-009507513-1211CAN006872

PATIENT
  Sex: Male

DRUGS (1)
  1. INTRON A [Suspect]
     Indication: MALIGNANT MELANOMA
     Dosage: 13 MILLION IU, Q3W
     Route: 058
     Dates: start: 20110912, end: 20121005

REACTIONS (1)
  - Polyarthritis [Not Recovered/Not Resolved]
